FAERS Safety Report 5094575-X (Version None)
Quarter: 2006Q3

REPORT INFORMATION
  Report Type: 
  Country: None (occurrence: None)
  Receive Date: 20060731
  Receipt Date: 20060429
  Transmission Date: 20061208
  Serious: No
  Sender: FDA-Public Use
  Company Number: 2006PV013016

PATIENT
  Age: 44 Year
  Sex: Female
  Weight: 64.5015 kg

DRUGS (3)
  1. BYETTA [Suspect]
     Indication: DIABETES MELLITUS NON-INSULIN-DEPENDENT
     Dosage: 10 MCG; BID; SC; SEE IMAGE
     Route: 058
     Dates: start: 20060201, end: 20060425
  2. PRANDIN [Concomitant]
  3. METFORMIN HCL [Concomitant]

REACTIONS (1)
  - CONSTIPATION [None]
